FAERS Safety Report 15327900 (Version 1)
Quarter: 2018Q3

REPORT INFORMATION
  Report Type: Spontaneous
  Country: US (occurrence: US)
  Receive Date: 20180828
  Receipt Date: 20180828
  Transmission Date: 20181010
  Serious: No
  Sender: FDA-Public Use
  Company Number: US-ROCHE-2091453

PATIENT
  Sex: Female

DRUGS (1)
  1. PEGASYS [Suspect]
     Active Substance: PEGINTERFERON ALFA-2A
     Indication: ESSENTIAL THROMBOCYTHAEMIA
     Dosage: ONGOING: UNKNOWN, FORM STRENGTH: 180 MCG/ ML
     Route: 058
     Dates: start: 20171114

REACTIONS (6)
  - Pain [Unknown]
  - Influenza like illness [Unknown]
  - Off label use [Unknown]
  - Chest pain [Unknown]
  - Pyrexia [Unknown]
  - Intentional product use issue [Unknown]
